FAERS Safety Report 21217275 (Version 1)
Quarter: 2022Q3

REPORT INFORMATION
  Report Type: Spontaneous
  Country: US (occurrence: None)
  Receive Date: 20220816
  Receipt Date: 20220816
  Transmission Date: 20221026
  Serious: Yes (Death)
  Sender: FDA-Public Use
  Company Number: None

PATIENT
  Age: 61 Year
  Sex: Male
  Weight: 127 kg

DRUGS (1)
  1. BEBTELOVIMAB [Suspect]
     Active Substance: BEBTELOVIMAB
     Indication: COVID-19
     Dosage: OTHER FREQUENCY : ONCE;?
     Route: 041
     Dates: start: 20220809, end: 20220809

REACTIONS (16)
  - Myalgia [None]
  - Back pain [None]
  - Respiratory failure [None]
  - Therapeutic product effect decreased [None]
  - White blood cell count increased [None]
  - Blood lactic acid increased [None]
  - Blood creatinine increased [None]
  - Anion gap increased [None]
  - Metabolic acidosis [None]
  - Heart rate irregular [None]
  - Cardiac arrest [None]
  - Resuscitation [None]
  - Hypotension [None]
  - Unresponsive to stimuli [None]
  - Lung opacity [None]
  - Pneumonia [None]

NARRATIVE: CASE EVENT DATE: 20220809
